FAERS Safety Report 7938204-3 (Version None)
Quarter: 2011Q4

REPORT INFORMATION
  Report Type: 
  Country: None (occurrence: None)
  Receive Date: 20111123
  Receipt Date: 20110916
  Transmission Date: 20120403
  Serious: No
  Sender: FDA-Public Use
  Company Number: US-BRISTOL-MYERS SQUIBB COMPANY-16054645

PATIENT
  Age: 78 Year
  Sex: Male

DRUGS (12)
  1. NIASPAN [Concomitant]
  2. DIOVAN [Concomitant]
  3. IMDUR [Concomitant]
  4. ALBUTEROL [Concomitant]
  5. DIGOXIN [Concomitant]
  6. FENOFIBRATE [Concomitant]
  7. ZETIA [Concomitant]
  8. PRILOSEC [Concomitant]
  9. LOVASTATIN [Concomitant]
  10. METOPROLOL SUCCINATE EXTENDED RELEASE [Concomitant]
  11. ONGLYZA [Suspect]
  12. SPIRIVA [Concomitant]

REACTIONS (1)
  - WEIGHT DECREASED [None]
